FAERS Safety Report 4285286-9 (Version None)
Quarter: 2004Q1

REPORT INFORMATION
  Report Type: 
  Country: None (occurrence: None)
  Receive Date: 20040204
  Receipt Date: 20040127
  Transmission Date: 20041129
  Serious: Yes (Hospitalization, Other)
  Sender: FDA-Public Use
  Company Number: PHBS2004US01393

PATIENT
  Age: 40 Year
  Sex: Male

DRUGS (5)
  1. CARBAMAZEPINE [Suspect]
     Indication: CONVULSION
     Route: 065
  2. GABAPENTIN [Concomitant]
     Indication: CONVULSION
     Route: 065
  3. PHENYTOIN [Concomitant]
     Indication: CONVULSION
     Route: 065
  4. LAMOTRIGINE [Concomitant]
     Indication: CONVULSION
     Route: 065
  5. LEVETIRACETAM [Concomitant]
     Route: 065

REACTIONS (12)
  - CONVULSION [None]
  - ENCEPHALITIS [None]
  - HALLUCINATION, AUDITORY [None]
  - MEMORY IMPAIRMENT [None]
  - MOTOR DYSFUNCTION [None]
  - MUSCLE TIGHTNESS [None]
  - MUSCLE TWITCHING [None]
  - MYDRIASIS [None]
  - SALIVARY HYPERSECRETION [None]
  - STATUS EPILEPTICUS [None]
  - SURGERY [None]
  - TEMPORAL LOBE EPILEPSY [None]
